FAERS Safety Report 6119657-2 (Version None)
Quarter: 2009Q1

REPORT INFORMATION
  Report Type: 
  Country: None (occurrence: None)
  Receive Date: 20090311
  Receipt Date: 20090303
  Transmission Date: 20090719
  Serious: Yes (Life-Threatening, Hospitalization)
  Sender: FDA-Public Use
  Company Number: GXKR2009DE02690

PATIENT
  Age: 88 Year
  Sex: Female
  Weight: 73.2 kg

DRUGS (10)
  1. GLIBENCLAMIDE (NGX) (GLIBENCLAMIDE) TABLET, 5MG [Suspect]
     Indication: TYPE 2 DIABETES MELLITUS
     Dosage: 3L5 MG, QD, ORAL
     Route: 048
  2. BISOPROLOL FUMARATE [Suspect]
     Indication: HYPERTENSION
     Dosage: 5 MG, QD, ORAL
     Route: 048
  3. ENALAPRIL MALEATE [Suspect]
     Dosage: 10 MG, BID
     Dates: end: 20080401
  4. ACETYLSALICYLIC ACID SRT [Concomitant]
  5. AGGRENOX [Concomitant]
  6. ARTHOTEC FORTE (DICLOFENAC SODIUM, MISOPROSTOL) [Concomitant]
  7. LACTULOSE [Concomitant]
  8. ACETAMINOPHEN [Concomitant]
  9. SIMVASTATIN [Concomitant]
  10. TRIAMPUR (HYDROCHLOROTHIAZIDE, TRIAMTERENE) [Concomitant]

REACTIONS (1)
  - HYPOGLYCAEMIA [None]
